FAERS Safety Report 24342831 (Version 2)
Quarter: 2024Q3

REPORT INFORMATION
  Report Type: Spontaneous
  Country: GB (occurrence: GB)
  Receive Date: 20240920
  Receipt Date: 20240925
  Transmission Date: 20241016
  Serious: Yes (Death)
  Sender: NOVARTIS
  Company Number: GB-002147023-NVSC2024GB068824

PATIENT

DRUGS (3)
  1. PLUVICTO [Suspect]
     Active Substance: LUTETIUM LU-177 VIPIVOTIDE TETRAXETAN
     Indication: Prostate cancer
     Dosage: UNK (CYCLE 1)
     Route: 065
     Dates: start: 20231013
  2. PLUVICTO [Suspect]
     Active Substance: LUTETIUM LU-177 VIPIVOTIDE TETRAXETAN
     Dosage: UNK (CYCLE 2)
     Route: 065
     Dates: start: 20231124
  3. PLUVICTO [Suspect]
     Active Substance: LUTETIUM LU-177 VIPIVOTIDE TETRAXETAN
     Dosage: UNK (CYCLE 3)
     Route: 065
     Dates: start: 20240216

REACTIONS (3)
  - Prostate cancer [Fatal]
  - Malignant neoplasm progression [Fatal]
  - Ill-defined disorder [Unknown]
